FAERS Safety Report 17434492 (Version 5)
Quarter: 2020Q1

REPORT INFORMATION
  Report Type: Spontaneous
  Country: CA (occurrence: CA)
  Receive Date: 20200219
  Receipt Date: 20200330
  Transmission Date: 20200409
  Serious: Yes (Other)
  Sender: FDA-Public Use
  Company Number: CA-PFIZER INC-2020060695

PATIENT
  Age: 58 Year
  Sex: Female

DRUGS (1)
  1. METHOTREXATE SODIUM. [Suspect]
     Active Substance: METHOTREXATE SODIUM
     Indication: RHEUMATOID ARTHRITIS
     Dosage: UNK
     Route: 058
     Dates: end: 2020

REACTIONS (8)
  - Drug ineffective [Unknown]
  - Dizziness [Unknown]
  - Off label use [Unknown]
  - Product use issue [Unknown]
  - Chest X-ray abnormal [Unknown]
  - Abdominal discomfort [Unknown]
  - Immunodeficiency [Unknown]
  - Lung disorder [Unknown]
